FAERS Safety Report 8434759-3 (Version None)
Quarter: 2012Q2

REPORT INFORMATION
  Report Type: 
  Country: None (occurrence: None)
  Receive Date: 20120614
  Receipt Date: 20120608
  Transmission Date: 20120825
  Serious: Yes (Disabling, Other)
  Sender: FDA-Public Use
  Company Number: US-AMGEN-USASP2011064855

PATIENT
  Age: 65 Year
  Sex: Male
  Weight: 108.84 kg

DRUGS (4)
  1. ENBREL [Suspect]
     Dosage: 50 MG, QWK
     Dates: start: 20111021, end: 20111122
  2. ENBREL [Suspect]
     Indication: PSORIATIC ARTHROPATHY
     Dosage: 50 MG, QWK
     Route: 058
     Dates: start: 20110901, end: 20120401
  3. MUSCLE RELAXANTS [Concomitant]
     Dosage: UNK
  4. NEURONTIN [Concomitant]
     Dosage: UNK

REACTIONS (12)
  - SWELLING [None]
  - PENILE PAIN [None]
  - MOOD ALTERED [None]
  - DEPRESSION [None]
  - ERYTHEMA NODOSUM [None]
  - MOBILITY DECREASED [None]
  - PSORIATIC ARTHROPATHY [None]
  - GINGIVAL DISORDER [None]
  - INSOMNIA [None]
  - DERMATITIS CONTACT [None]
  - TOOTH LOSS [None]
  - GAIT DISTURBANCE [None]
